FAERS Safety Report 15821731 (Version 2)
Quarter: 2019Q1

REPORT INFORMATION
  Report Type: Spontaneous
  Country: US (occurrence: US)
  Receive Date: 20190114
  Receipt Date: 20190219
  Transmission Date: 20190417
  Serious: No
  Sender: FDA-Public Use
  Company Number: US-PFIZER INC-2019013773

PATIENT
  Age: 56 Year
  Sex: Female
  Weight: 65.32 kg

DRUGS (2)
  1. LYRICA [Suspect]
     Active Substance: PREGABALIN
     Indication: NEURALGIA
     Dosage: 600 MG, DAILY(200 MILLIGRAMS IN THE MORNING AND 400 MILLIGRAMS IN THE EVENING)
     Route: 048
     Dates: start: 201703
  2. LYRICA [Suspect]
     Active Substance: PREGABALIN
     Dosage: 200 MG, 2X/DAY (SHE WAS CUTTING HER SECOND DOSE DOWN TO ONE CAPSULE INSTEAD OF 2)
     Route: 048

REACTIONS (3)
  - Product use in unapproved indication [Unknown]
  - Intentional product use issue [Unknown]
  - Drug effect incomplete [Unknown]

NARRATIVE: CASE EVENT DATE: 201901
